FAERS Safety Report 9807125 (Version 3)
Quarter: 2014Q1

REPORT INFORMATION
  Report Type: Spontaneous
  Country: DK (occurrence: DK)
  Receive Date: 20140110
  Receipt Date: 20140123
  Transmission Date: 20141002
  Serious: Yes (Disabling, Other)
  Sender: FDA-Public Use
  Company Number: DK-GE HEALTHCARE MEDICAL DIAGNOSTICS-OSCN-E2B_00000014

PATIENT
  Sex: Male

DRUGS (2)
  1. OMNISCAN [Suspect]
     Indication: RENAL TRANSPLANT
     Dosage: DOSE NOT REPORTED
     Dates: start: 20030203, end: 20030203
  2. OMNISCAN [Suspect]
     Indication: DIAGNOSTIC PROCEDURE
     Dosage: DOSE NOT REPORTED
     Route: 042
     Dates: start: 20030415, end: 20030415

REACTIONS (15)
  - Nephrogenic systemic fibrosis [Not Recovered/Not Resolved]
  - Erythema [Not Recovered/Not Resolved]
  - Arthralgia [Not Recovered/Not Resolved]
  - Skin tightness [Not Recovered/Not Resolved]
  - Tenderness [Not Recovered/Not Resolved]
  - Skin wrinkling [Not Recovered/Not Resolved]
  - Pain in extremity [Not Recovered/Not Resolved]
  - Pain of skin [Not Recovered/Not Resolved]
  - Skin hypertrophy [Not Recovered/Not Resolved]
  - Musculoskeletal stiffness [Not Recovered/Not Resolved]
  - Walking disability [Not Recovered/Not Resolved]
  - Chronic obstructive pulmonary disease [Unknown]
  - Thrombosis [Unknown]
  - Gastrointestinal disorder [Unknown]
  - Gout [None]
